FAERS Safety Report 7164133-1 (Version None)
Quarter: 2010Q4

REPORT INFORMATION
  Report Type: 
  Country: None (occurrence: None)
  Receive Date: 20101215
  Receipt Date: 20101210
  Transmission Date: 20110411
  Serious: Yes (Hospitalization, Other)
  Sender: FDA-Public Use
  Company Number: US-PFIZER INC-2010124300

PATIENT
  Sex: Female

DRUGS (10)
  1. CHANTIX [Suspect]
     Indication: SMOKING CESSATION THERAPY
     Dosage: 0.5MG/ 1MG
     Dates: start: 20071001, end: 20071101
  2. LEXAPRO [Concomitant]
     Indication: DEPRESSION
     Dosage: UNK
     Dates: start: 20060101
  3. ZOLOFT [Concomitant]
     Indication: DEPRESSION
     Dosage: UNK
     Dates: start: 20060101
  4. XANAX [Concomitant]
     Indication: ANXIETY
     Dosage: UNK
     Dates: start: 20060101
  5. AMBIEN [Concomitant]
     Indication: SLEEP DISORDER
     Dosage: UNK
     Dates: start: 20060101
  6. ULTRACET [Concomitant]
     Indication: PAIN
     Dosage: UNK
     Dates: start: 20050101, end: 20100101
  7. LORTAB [Concomitant]
     Indication: PAIN
     Dosage: UNK
     Dates: start: 20050101, end: 20100101
  8. NAPROXEN [Concomitant]
     Indication: PAIN
     Dosage: UNK
     Dates: start: 20050101, end: 20100101
  9. CEPHALEXIN [Concomitant]
     Indication: INFECTION
     Dosage: UNK
     Dates: start: 20040101, end: 20100101
  10. AMOXICILLIN [Concomitant]
     Indication: INFECTION
     Dosage: UNK
     Dates: start: 20040101, end: 20100101

REACTIONS (9)
  - AGITATION [None]
  - ANXIETY [None]
  - BIPOLAR DISORDER [None]
  - DEPRESSION [None]
  - HALLUCINATION [None]
  - INSOMNIA [None]
  - INTENTIONAL OVERDOSE [None]
  - POST-TRAUMATIC STRESS DISORDER [None]
  - SUICIDE ATTEMPT [None]
